FAERS Safety Report 9897931 (Version 3)
Quarter: 2014Q2

REPORT INFORMATION
  Report Type: Spontaneous
  Country: US (occurrence: US)
  Receive Date: 20140214
  Receipt Date: 20140410
  Transmission Date: 20141212
  Serious: No
  Sender: FDA-Public Use
  Company Number: US-PFIZER INC-2014041892

PATIENT
  Age: 46 Year
  Sex: Female
  Weight: 81.6 kg

DRUGS (9)
  1. CHANTIX [Suspect]
     Indication: SMOKING CESSATION THERAPY
     Dosage: 0.5 MG, 2X/DAY
     Route: 048
     Dates: start: 20130405, end: 2013
  2. CHANTIX [Suspect]
     Dosage: UNK
     Route: 048
     Dates: start: 2013, end: 20131212
  3. OXYCONTIN [Concomitant]
     Indication: PAIN
     Dosage: 60 MG, 2X/DAY
     Dates: start: 20121018
  4. OXYCODONE [Concomitant]
     Indication: PAIN
     Dosage: 20 MG, 4X/DAY
     Dates: start: 20131017
  5. SOMA [Concomitant]
     Indication: MUSCLE SPASMS
     Dosage: 350 MG, 1X/DAY
     Dates: start: 20111109
  6. VALIUM [Concomitant]
     Dosage: UNK
  7. PHENERGAN [Concomitant]
     Dosage: UNK
  8. PHENTERMINE [Concomitant]
     Dosage: UNK
  9. AMBIEN [Concomitant]
     Dosage: UNK

REACTIONS (4)
  - Rash [Recovered/Resolved]
  - Hypersensitivity [Unknown]
  - Nausea [Recovered/Resolved]
  - Vomiting [Recovered/Resolved]
